FAERS Safety Report 17573053 (Version 1)
Quarter: 2020Q1

REPORT INFORMATION
  Report Type: Spontaneous
  Country: PL (occurrence: PL)
  Receive Date: 20200323
  Receipt Date: 20200323
  Transmission Date: 20200409
  Serious: Yes (Other)
  Sender: FDA-Public Use
  Company Number: PL-MYLANLABS-2020M1029320

PATIENT
  Age: 60 Year
  Sex: Female

DRUGS (3)
  1. IBRANCE [Suspect]
     Active Substance: PALBOCICLIB
     Indication: BREAST CANCER METASTATIC
     Dosage: 125 MG, 1X/DAY, CYCLIC
  2. FULVESTRANT. [Suspect]
     Active Substance: FULVESTRANT
     Indication: BREAST CANCER METASTATIC
     Dosage: UNK UNK, CYCLIC
  3. IBRANCE [Suspect]
     Active Substance: PALBOCICLIB
     Dosage: 100 MILLIGRAM, CYCLE

REACTIONS (3)
  - Pyrexia [Unknown]
  - Erysipelas [Recovered/Resolved]
  - Neutropenia [Recovering/Resolving]
